FAERS Safety Report 5269547-2 (Version None)
Quarter: 2007Q1

REPORT INFORMATION
  Report Type: 
  Country: None (occurrence: None)
  Receive Date: 20061215
  Receipt Date: 20061109
  Transmission Date: 20070707
  Serious: Yes (Other)
  Sender: FDA-Public Use
  Company Number: 06-001318

PATIENT
  Age: 43 Year
  Sex: Female
  Weight: 74.4 kg

DRUGS (1)
  1. OVCON-35 [Suspect]
     Indication: MENSTRUATION IRREGULAR
     Dosage: 0.4 MG/35 MCG,QD;ORAL
     Route: 048
     Dates: start: 20061002, end: 20061105

REACTIONS (1)
  - HYPERSENSITIVITY [None]
